FAERS Safety Report 5321157-4 (Version None)
Quarter: 2007Q2

REPORT INFORMATION
  Report Type: 
  Country: None (occurrence: None)
  Receive Date: 20070507
  Receipt Date: 20070507
  Transmission Date: 20071010
  Serious: No
  Sender: FDA-Public Use
  Company Number: None

PATIENT
  Sex: Female

DRUGS (4)
  1. AMBIEN [Suspect]
     Indication: INSOMNIA
     Dosage: 10 MG ONCE AT BEDTIME PO
     Route: 048
     Dates: start: 20070411, end: 20070415
  2. AMBIEN [Suspect]
     Indication: INSOMNIA
     Dosage: 10 MG ONCE AT BEDTIME PO
     Route: 048
     Dates: start: 20070430, end: 20070502
  3. EFFEXOR XR [Concomitant]
  4. VELIVET [Concomitant]

REACTIONS (1)
  - HERPES ZOSTER [None]
